FAERS Safety Report 8787694 (Version 3)
Quarter: 2015Q1

REPORT INFORMATION
  Report Type: Report from Study
  Country: US (occurrence: US)
  Receive Date: 20120914
  Receipt Date: 20150219
  Transmission Date: 20150721
  Serious: Yes (Death, Hospitalization)
  Sender: FDA-Public Use
  Company Number: US-ROCHE-1125122

PATIENT
  Sex: Female

DRUGS (3)
  1. CYTOXAN [Concomitant]
     Active Substance: CYCLOPHOSPHAMIDE
  2. AVASTIN [Suspect]
     Active Substance: BEVACIZUMAB
     Indication: OVARIAN CANCER
     Route: 042
     Dates: start: 20090225, end: 201005
  3. LYRICA [Concomitant]
     Active Substance: PREGABALIN

REACTIONS (13)
  - Disease progression [Fatal]
  - Pain in extremity [Unknown]
  - Tooth abscess [Recovering/Resolving]
  - Oedema peripheral [Unknown]
  - Performance status decreased [Unknown]
  - Headache [Unknown]
  - Arthralgia [Unknown]
  - Depression [Unknown]
  - Decreased appetite [Unknown]
  - Off label use [Unknown]
  - Constipation [Unknown]
  - Weight decreased [Unknown]
  - Hypertension [Unknown]
